FAERS Safety Report 7904065-1 (Version None)
Quarter: 2011Q4

REPORT INFORMATION
  Report Type: 
  Country: None (occurrence: None)
  Receive Date: 20111109
  Receipt Date: 20111104
  Transmission Date: 20120403
  Serious: Yes (Other)
  Sender: FDA-Public Use
  Company Number: JP-PFIZER INC-2011271193

PATIENT
  Age: 62 Year
  Sex: Female

DRUGS (2)
  1. CORTRIL [Suspect]
     Dosage: UNK
     Route: 048
  2. PREDNISOLONE [Concomitant]
     Dosage: UNK

REACTIONS (1)
  - ADRENOCORTICAL INSUFFICIENCY ACUTE [None]
